FAERS Safety Report 8377525-X (Version None)
Quarter: 2012Q2

REPORT INFORMATION
  Report Type: 
  Country: None (occurrence: None)
  Receive Date: 20120522
  Receipt Date: 20120504
  Transmission Date: 20120825
  Serious: Yes (Death, Other)
  Sender: FDA-Public Use
  Company Number: US-ROCHE-1068562

PATIENT
  Sex: Male
  Weight: 71.732 kg

DRUGS (1)
  1. XELODA [Suspect]
     Indication: COLORECTAL CANCER METASTATIC
     Route: 048

REACTIONS (6)
  - UNEVALUABLE EVENT [None]
  - ERYTHEMA [None]
  - HYPOPHAGIA [None]
  - DEATH [None]
  - STOMATITIS [None]
  - RENAL FAILURE [None]
